FAERS Safety Report 15858432 (Version 1)
Quarter: 2019Q1

REPORT INFORMATION
  Report Type: Spontaneous
  Country: US (occurrence: US)
  Receive Date: 20190123
  Receipt Date: 20190123
  Transmission Date: 20190417
  Serious: No
  Sender: FDA-Public Use
  Company Number: US-PFIZER INC-2019028277

PATIENT
  Age: 50 Year
  Sex: Male

DRUGS (6)
  1. COREG [Suspect]
     Active Substance: CARVEDILOL
     Dosage: UNK
  2. CYCLOBENZAPRINE. [Suspect]
     Active Substance: CYCLOBENZAPRINE
     Dosage: UNK
  3. ENDOCET [Suspect]
     Active Substance: ACETAMINOPHEN\OXYCODONE HYDROCHLORIDE
     Dosage: UNK
  4. DARVOCET [Suspect]
     Active Substance: ACETAMINOPHEN\PROPOXYPHENE HYDROCHLORIDE
     Dosage: UNK
  5. DEMEROL [Suspect]
     Active Substance: MEPERIDINE HYDROCHLORIDE
     Dosage: UNK
  6. DARVON [BETAHISTINE MESILATE] [Suspect]
     Active Substance: BETAHISTINE MESILATE
     Dosage: UNK

REACTIONS (1)
  - Drug hypersensitivity [Unknown]
